FAERS Safety Report 6416752-5 (Version None)
Quarter: 2009Q4

REPORT INFORMATION
  Report Type: 
  Country: None (occurrence: None)
  Receive Date: 20091022
  Receipt Date: 20091012
  Transmission Date: 20100525
  Serious: Yes (Hospitalization)
  Sender: FDA-Public Use
  Company Number: CERZ-1000728

PATIENT
  Age: 71 Year
  Sex: Female
  Weight: 82.4 kg

DRUGS (2)
  1. CEREZYME [Suspect]
     Indication: GAUCHER'S DISEASE
     Dosage: 60 U/KG, Q3W, INTRAVENOUS
     Route: 042
     Dates: start: 19921201
  2. CEREZYME [Suspect]

REACTIONS (7)
  - ARTHRITIS [None]
  - BLOOD PRESSURE INCREASED [None]
  - BREAST CANCER [None]
  - CHEST PAIN [None]
  - DYSARTHRIA [None]
  - ERYTHEMA [None]
  - INAPPROPRIATE ANTIDIURETIC HORMONE SECRETION [None]
